FAERS Safety Report 4311463-4 (Version None)
Quarter: 2004Q1

REPORT INFORMATION
  Report Type: 
  Country: None (occurrence: None)
  Receive Date: 20040303
  Receipt Date: 20040303
  Transmission Date: 20041129
  Serious: Yes (Hospitalization)
  Sender: FDA-Public Use
  Company Number: None

PATIENT
  Sex: Female
  Weight: 50 kg

DRUGS (9)
  1. VIREAD [Suspect]
     Indication: HIV INFECTION
     Dosage: 300 MG DAILY, ORAL
     Route: 048
     Dates: start: 20030903, end: 20030908
  2. BIAXIN [Concomitant]
  3. ETHAMBUTOL HCL [Concomitant]
  4. VIDEX [Concomitant]
  5. VIRAMUNE [Concomitant]
  6. ADRIAMYCIN PFS [Concomitant]
  7. BLEOMYCIN [Concomitant]
  8. VINBLASTINE [Concomitant]
  9. DACARBAZINE [Concomitant]

REACTIONS (6)
  - ABDOMINAL PAIN UPPER [None]
  - CHILLS [None]
  - DYSPNOEA [None]
  - PLEURITIC PAIN [None]
  - PYREXIA [None]
  - RENAL FAILURE ACUTE [None]
